FAERS Safety Report 5820038-7 (Version None)
Quarter: 2008Q3

REPORT INFORMATION
  Report Type: 
  Country: None (occurrence: None)
  Receive Date: 20080718
  Receipt Date: 20080718
  Transmission Date: 20090109
  Serious: Yes (Death, Hospitalization)
  Sender: FDA-Public Use
  Company Number: None

PATIENT
  Sex: Female
  Weight: 66 kg

DRUGS (3)
  1. CYTARABINE [Suspect]
  2. DAUNORUBICIN HCL [Suspect]
  3. ETOPOSIDE [Suspect]

REACTIONS (7)
  - BACTERIAL SEPSIS [None]
  - BLOOD BILIRUBIN INCREASED [None]
  - CONDITION AGGRAVATED [None]
  - HAEMODIALYSIS [None]
  - LUNG INFILTRATION [None]
  - RENAL FAILURE [None]
  - WEANING FAILURE [None]
